FAERS Safety Report 21464749 (Version 4)
Quarter: 2023Q2

REPORT INFORMATION
  Report Type: Other
  Country: DE (occurrence: None)
  Receive Date: 20221017
  Receipt Date: 20230508
  Transmission Date: 20230721
  Serious: No
  Sender: FDA-Public Use
  Company Number: DE-ROCHE-2968681

PATIENT
  Age: 51 Year
  Sex: Female

DRUGS (4)
  1. OCREVUS [Suspect]
     Active Substance: OCRELIZUMAB
     Indication: Relapsing-remitting multiple sclerosis
     Dosage: THEN 600 MG, FREQUENCY 224 DAYS.
     Route: 042
     Dates: start: 20211111
  2. OCREVUS [Suspect]
     Active Substance: OCRELIZUMAB
     Indication: Primary progressive multiple sclerosis
     Route: 042
     Dates: start: 20220701
  3. ESTRADIOL [Concomitant]
     Active Substance: ESTRADIOL
  4. PROGESTERONE [Concomitant]
     Active Substance: PROGESTERONE

REACTIONS (6)
  - Headache [Recovered/Resolved]
  - Fatigue [Recovered/Resolved]
  - Gastric infection [Recovered/Resolved]
  - Gastroenteritis [Recovered/Resolved]
  - Infection susceptibility increased [Recovered/Resolved]
  - Pulpitis dental [Unknown]

NARRATIVE: CASE EVENT DATE: 20211111
